FAERS Safety Report 6182336-X (Version None)
Quarter: 2009Q2

REPORT INFORMATION
  Report Type: 
  Country: None (occurrence: None)
  Receive Date: 20090507
  Receipt Date: 20090504
  Transmission Date: 20091009
  Serious: Yes (Death)
  Sender: FDA-Public Use
  Company Number: GR-ABBOTT-09P-066-0568234-00

PATIENT
  Sex: Male
  Weight: 63.5 kg

DRUGS (6)
  1. ZEMPLAR [Suspect]
     Indication: HYPERPARATHYROIDISM SECONDARY
     Route: 042
     Dates: start: 20070523
  2. PLAVIX [Concomitant]
     Indication: CORONARY ARTERY DISEASE
     Route: 048
  3. MONOSORDIL [Concomitant]
     Indication: CORONARY ARTERY DISEASE
     Route: 048
  4. NEXIUM [Concomitant]
     Indication: PROPHYLAXIS AGAINST GASTROINTESTINAL ULCER
     Route: 048
  5. DILATREND [Concomitant]
     Indication: CORONARY ARTERY DISEASE
     Route: 048
  6. VENOFER [Concomitant]
     Indication: IRON DEFICIENCY
     Route: 042
     Dates: start: 20071008

REACTIONS (1)
  - ACUTE MYOCARDIAL INFARCTION [None]
